FAERS Safety Report 14282933 (Version 1)
Quarter: 2017Q4

REPORT INFORMATION
  Report Type: Not Available
  Country: US (occurrence: US)
  Receive Date: 20171213
  Receipt Date: 20171213
  Transmission Date: 20180321
  Serious: Yes (Other)
  Sender: FDA-Public Use
  Company Number: US-FOUNDATIONCONSUMERHC-2017-US-014698

PATIENT
  Age: 40 Year
  Sex: Female
  Weight: 56.7 kg

DRUGS (2)
  1. PLAN B ONE-STEP [Suspect]
     Active Substance: LEVONORGESTREL
     Dosage: 1 TAB
     Route: 048
     Dates: start: 20171207, end: 20171207
  2. PLAN B ONE-STEP [Suspect]
     Active Substance: LEVONORGESTREL
     Dosage: 1 TAB
     Route: 048
     Dates: start: 201709, end: 201709

REACTIONS (11)
  - Dizziness [Unknown]
  - Pyrexia [Recovered/Resolved]
  - Headache [Unknown]
  - Influenza [Unknown]
  - Stress [None]
  - Urinary tract infection [Unknown]
  - Nausea [Unknown]
  - Menstruation delayed [Unknown]
  - Malaise [Unknown]
  - Pollakiuria [Unknown]
  - Vaginal haemorrhage [Recovered/Resolved]

NARRATIVE: CASE EVENT DATE: 201709
